FAERS Safety Report 5671047-2 (Version None)
Quarter: 2008Q1

REPORT INFORMATION
  Report Type: 
  Country: None (occurrence: None)
  Receive Date: 20080318
  Receipt Date: 20080313
  Transmission Date: 20080703
  Serious: Yes (Death, Other)
  Sender: FDA-Public Use
  Company Number: GB-WYE-G01244508

PATIENT
  Age: 22 Year
  Sex: Male
  Weight: 50 kg

DRUGS (1)
  1. IBUPROFEN [Suspect]
     Indication: MUSCLE INJURY
     Dosage: UNKNOWN

REACTIONS (4)
  - BRAIN HERNIATION [None]
  - BRAIN OEDEMA [None]
  - HYPONATRAEMIC ENCEPHALOPATHY [None]
  - SUBARACHNOID HAEMORRHAGE [None]
